FAERS Safety Report 5654375-6 (Version None)
Quarter: 2008Q1

REPORT INFORMATION
  Report Type: 
  Country: None (occurrence: None)
  Receive Date: 20080305
  Receipt Date: 20080220
  Transmission Date: 20080703
  Serious: Yes (Hospitalization)
  Sender: FDA-Public Use
  Company Number: 2008BI004360

PATIENT
  Sex: Female
  Weight: 52.1637 kg

DRUGS (3)
  1. AVONEX [Suspect]
     Indication: DRUG USE FOR UNKNOWN INDICATION
     Dosage: ;IM
     Route: 030
     Dates: start: 20060115
  2. DITROPAN [Concomitant]
  3. PREDNISONE TAB [Concomitant]

REACTIONS (4)
  - CHILLS [None]
  - INFLUENZA LIKE ILLNESS [None]
  - PNEUMONIA [None]
  - PYREXIA [None]
